FAERS Safety Report 7250292-9 (Version None)
Quarter: 2011Q1

REPORT INFORMATION
  Report Type: 
  Country: None (occurrence: None)
  Receive Date: 20110119
  Receipt Date: 20110112
  Transmission Date: 20110831
  Serious: No
  Sender: FDA-Public Use
  Company Number: 2010PL000178

PATIENT
  Age: 22 Year
  Sex: Female
  Weight: 102.9665 kg

DRUGS (3)
  1. LOTRONEX [Suspect]
     Indication: IRRITABLE BOWEL SYNDROME
     Dosage: 0.5 MG BID, PO
     Route: 048
     Dates: start: 20101123, end: 20101203
  2. ESOMEPRAZOLE [Concomitant]
  3. LEXAPRO [Concomitant]

REACTIONS (3)
  - ABDOMINAL PAIN [None]
  - RECTAL HAEMORRHAGE [None]
  - HAEMATOCHEZIA [None]
